FAERS Safety Report 6344004-0 (Version None)
Quarter: 2009Q3

REPORT INFORMATION
  Report Type: 
  Country: None (occurrence: None)
  Receive Date: 20090908
  Receipt Date: 20090619
  Transmission Date: 20100115
  Serious: Yes (Other)
  Sender: FDA-Public Use
  Company Number: US-PFIZER INC-2009230455

PATIENT
  Sex: Male
  Weight: 73.923 kg

DRUGS (2)
  1. XANAX [Suspect]
     Indication: PANIC ATTACK
     Dosage: 1 MG, UNK
     Dates: start: 20081201, end: 20090201
  2. PERCOCET [Concomitant]

REACTIONS (2)
  - LOSS OF CONSCIOUSNESS [None]
  - MEMORY IMPAIRMENT [None]
